FAERS Safety Report 4897117-4 (Version None)
Quarter: 2006Q1

REPORT INFORMATION
  Report Type: 
  Country: None (occurrence: None)
  Receive Date: 20060127
  Receipt Date: 20060105
  Transmission Date: 20060701
  Serious: Yes (Hospitalization)
  Sender: FDA-Public Use
  Company Number: DE_051017322

PATIENT
  Age: 44 Year
  Sex: Female
  Weight: 100 kg

DRUGS (4)
  1. CYMBALTA [Suspect]
     Indication: MAJOR DEPRESSION
     Dosage: 60 MG, DAILY (1/D), ORAL
     Route: 048
     Dates: start: 20050617, end: 20050622
  2. BELOC-ZOC COMP (HYDROCHLOROTHIAZIDE, METOPROLOL SUCCINATE) [Concomitant]
  3. ENALAPRIL MALEATE [Concomitant]
  4. MORPHINE [Concomitant]

REACTIONS (4)
  - CONFUSIONAL STATE [None]
  - DIFFICULTY IN WALKING [None]
  - NAUSEA [None]
  - VERTIGO [None]
